FAERS Safety Report 7623562-X (Version None)
Quarter: 2011Q3

REPORT INFORMATION
  Report Type: 
  Country: None (occurrence: None)
  Receive Date: 20110720
  Receipt Date: 20110705
  Transmission Date: 20111222
  Serious: Yes (Other)
  Sender: FDA-Public Use
  Company Number: AU-SANOFI-AVENTIS-2011SA044508

PATIENT
  Age: 79 Year
  Sex: Male
  Weight: 95 kg

DRUGS (3)
  1. DRONEDARONE HCL [Suspect]
     Indication: ATRIAL FIBRILLATION
     Route: 048
     Dates: start: 20110518
  2. FUROSEMIDE [Concomitant]
     Indication: HYPERTENSION
  3. WARFARIN SODIUM [Concomitant]

REACTIONS (3)
  - CONDITION AGGRAVATED [None]
  - RENAL FAILURE CHRONIC [None]
  - CARDIAC FAILURE [None]
